FAERS Safety Report 15133860 (Version 2)
Quarter: 2018Q3

REPORT INFORMATION
  Report Type: Spontaneous
  Country: JP (occurrence: JP)
  Receive Date: 20180712
  Receipt Date: 20180830
  Transmission Date: 20181010
  Serious: Yes (Other)
  Sender: FDA-Public Use
  Company Number: JP-BAYER-2018-126256

PATIENT
  Age: 67 Year
  Sex: Male
  Weight: 50.5 kg

DRUGS (1)
  1. KOVALTRY [Suspect]
     Active Substance: ANTIHEMOPHILIC FACTOR, HUMAN RECOMBINANT
     Dosage: TIW, AFTER THE TIME OF DIALYSIS
     Route: 042
     Dates: start: 20180307

REACTIONS (2)
  - Puncture site haemorrhage [Recovered/Resolved]
  - Haemorrhagic diathesis [Recovered/Resolved]

NARRATIVE: CASE EVENT DATE: 2018
